FAERS Safety Report 5563654-2 (Version None)
Quarter: 2007Q4

REPORT INFORMATION
  Report Type: 
  Country: None (occurrence: None)
  Receive Date: 20071217
  Receipt Date: 20070726
  Transmission Date: 20080405
  Serious: No
  Sender: FDA-Public Use
  Company Number: US-ASTRAZENECA-2007UW18150

PATIENT
  Age: 45 Year
  Sex: Female
  Weight: 57.2 kg

DRUGS (6)
  1. CRESTOR [Suspect]
     Indication: BLOOD CHOLESTEROL INCREASED
     Route: 048
     Dates: start: 20070301
  2. ZETIA [Concomitant]
  3. BENICAR HCT [Concomitant]
  4. NADOLOL [Concomitant]
  5. OMOCOR [Concomitant]
  6. PRILOSEC [Concomitant]
     Route: 048

REACTIONS (3)
  - ASTHENIA [None]
  - BURNING SENSATION [None]
  - MYALGIA [None]
